FAERS Safety Report 5105828-0 (Version None)
Quarter: 2006Q3

REPORT INFORMATION
  Report Type: 
  Country: None (occurrence: None)
  Receive Date: 20060912
  Receipt Date: 20060825
  Transmission Date: 20061208
  Serious: Yes (Hospitalization, Other)
  Sender: FDA-Public Use
  Company Number: US200608005958

PATIENT
  Age: 91 Year
  Sex: Female

DRUGS (1)
  1. HUMULIN L [Suspect]
     Indication: DIABETES MELLITUS

REACTIONS (1)
  - BLADDER CANCER [None]
